FAERS Safety Report 20781684 (Version 1)
Quarter: 2022Q2

REPORT INFORMATION
  Report Type: Spontaneous
  Country: US (occurrence: US)
  Receive Date: 20220504
  Receipt Date: 20220504
  Transmission Date: 20220721
  Serious: Yes (Hospitalization, Other)
  Sender: FDA-Public Use
  Company Number: US-BRISTOL-MYERS SQUIBB COMPANY-2022-027495

PATIENT
  Age: 88 Year
  Sex: Female
  Weight: 53 kg

DRUGS (1)
  1. REVLIMID [Suspect]
     Active Substance: LENALIDOMIDE
     Indication: Follicular lymphoma
     Dosage: FREQUENCY 21 DAYS ON 7 DAYS OFF
     Route: 048
     Dates: start: 20210617, end: 20220418

REACTIONS (2)
  - Sepsis [Not Recovered/Not Resolved]
  - Atrial fibrillation [Not Recovered/Not Resolved]
